FAERS Safety Report 24013953 (Version 2)
Quarter: 2024Q3

REPORT INFORMATION
  Report Type: Spontaneous
  Country: US (occurrence: US)
  Receive Date: 20240626
  Receipt Date: 20240712
  Transmission Date: 20241016
  Serious: No
  Sender: GLAXOSMITHKLINE
  Company Number: US-GSK-US2024AMR076932

PATIENT
  Age: 75 Year

DRUGS (1)
  1. ARNUITY ELLIPTA [Suspect]
     Active Substance: FLUTICASONE FUROATE
     Indication: Product used for unknown indication
     Dosage: UNK

REACTIONS (10)
  - Arthralgia [Unknown]
  - Myalgia [Unknown]
  - Viral infection [Unknown]
  - Condition aggravated [Unknown]
  - Decreased appetite [Unknown]
  - Dizziness [Unknown]
  - Blood pressure decreased [Unknown]
  - Panic reaction [Unknown]
  - Disorientation [Unknown]
  - Presyncope [Unknown]
